FAERS Safety Report 12546237 (Version 5)
Quarter: 2019Q2

REPORT INFORMATION
  Report Type: Report from Study
  Country: CA (occurrence: CA)
  Receive Date: 20160711
  Receipt Date: 20190517
  Transmission Date: 20190711
  Serious: Yes (Life-Threatening, Hospitalization, Other)
  Sender: FDA-Public Use
  Company Number: CA-TAKEDA-2016TUS011508

PATIENT
  Age: 64 Year
  Sex: Male

DRUGS (15)
  1. ATORVASTATIN [Concomitant]
     Active Substance: ATORVASTATIN
     Dosage: 10 MILLIGRAM, QD
  2. ELIQUIS [Concomitant]
     Active Substance: APIXABAN
     Dosage: 5 MILLIGRAM, BID
  3. INSULIN ASPART (APIDRA) [Concomitant]
     Dosage: UNK UNK, TID
  4. VEDOLIZUMAB [Suspect]
     Active Substance: VEDOLIZUMAB
     Dosage: 300 MILLIGRAM, Q4WEEKS
     Route: 042
  5. VEDOLIZUMAB [Suspect]
     Active Substance: VEDOLIZUMAB
     Indication: COLITIS ULCERATIVE
     Dosage: 300 MILLIGRAM
     Route: 042
     Dates: start: 20160519
  6. ACETAMINOPHEN. [Concomitant]
     Active Substance: ACETAMINOPHEN
     Indication: PREMEDICATION
     Dosage: 650 MILLIGRAM
     Route: 048
  7. VEDOLIZUMAB [Suspect]
     Active Substance: VEDOLIZUMAB
     Dosage: 300 MILLIGRAM, Q4WEEKS
     Route: 042
  8. LANTUS [Concomitant]
     Active Substance: INSULIN GLARGINE
     Dosage: UNK UNK, QD
  9. METOPROLOL. [Concomitant]
     Active Substance: METOPROLOL
     Dosage: 100 MILLIGRAM, BID
  10. VIT D [Concomitant]
     Active Substance: VITAMIN D NOS
     Dosage: 2000 INTERNATIONAL UNIT, QD
  11. CALCIUM CARBONATE. [Concomitant]
     Active Substance: CALCIUM CARBONATE
     Dosage: 1250 MILLIGRAM, QD
  12. VENOFER [Concomitant]
     Active Substance: IRON SUCROSE
     Dosage: UNK
  13. VEDOLIZUMAB [Suspect]
     Active Substance: VEDOLIZUMAB
     Dosage: 300 MILLIGRAM, Q4WEEKS
     Route: 042
     Dates: start: 20170120
  14. PREDNISONE. [Concomitant]
     Active Substance: PREDNISONE
     Dosage: UNK
  15. CORTISONE [Concomitant]
     Active Substance: CORTISONE\HYDROCORTISONE
     Dosage: UNK

REACTIONS (4)
  - Respiratory arrest [Unknown]
  - Atrioventricular block complete [Unknown]
  - Atrial flutter [Unknown]
  - Off label use [Unknown]

NARRATIVE: CASE EVENT DATE: 20160621
